FAERS Safety Report 10640403 (Version 1)
Quarter: 2014Q4

REPORT INFORMATION
  Report Type: Spontaneous
  Country: US (occurrence: US)
  Receive Date: 20141209
  Receipt Date: 20141209
  Transmission Date: 20150529
  Serious: Yes (Other)
  Sender: FDA-Public Use
  Company Number: US-TEVA-448637USA

PATIENT
  Sex: Female
  Weight: 60.84 kg

DRUGS (5)
  1. GEODON [Concomitant]
     Active Substance: ZIPRASIDONE HYDROCHLORIDE\ZIPRASIDONE MESYLATE
     Indication: SCHIZOPHRENIA
  2. KLONOPIN [Concomitant]
     Active Substance: CLONAZEPAM
     Indication: ANXIETY
  3. CLOZAPINE. [Suspect]
     Active Substance: CLOZAPINE
     Indication: SCHIZOPHRENIA
  4. CLOZAPINE. [Suspect]
     Active Substance: CLOZAPINE
     Indication: PSYCHOTIC DISORDER
     Dates: start: 20131120, end: 20131130
  5. COGENTIN [Concomitant]
     Active Substance: BENZTROPINE MESYLATE
     Indication: SCHIZOPHRENIA
     Dosage: 1 MILLIGRAM DAILY;
     Route: 048

REACTIONS (6)
  - Delirium [Recovered/Resolved]
  - Feeling abnormal [Recovered/Resolved]
  - Eye pain [Recovered/Resolved]
  - Feeling cold [Recovered/Resolved]
  - Constipation [Unknown]
  - Vision blurred [Recovered/Resolved]

NARRATIVE: CASE EVENT DATE: 20131130
